FAERS Safety Report 11436400 (Version 1)
Quarter: 2015Q3

REPORT INFORMATION
  Report Type: Spontaneous
  Country: US (occurrence: US)
  Receive Date: 20150831
  Receipt Date: 20150831
  Transmission Date: 20151125
  Serious: No
  Sender: FDA-Public Use
  Company Number: US-LEO PHARMA-236576

PATIENT
  Age: 73 Year
  Sex: Female

DRUGS (1)
  1. PICATO [Suspect]
     Active Substance: INGENOL MEBUTATE
     Indication: PRECANCEROUS SKIN LESION
     Route: 061
     Dates: start: 20150819, end: 20150820

REACTIONS (4)
  - Application site irritation [Unknown]
  - Drug administered at inappropriate site [Unknown]
  - Application site erythema [Recovering/Resolving]
  - Application site exfoliation [Recovering/Resolving]

NARRATIVE: CASE EVENT DATE: 20150819
